FAERS Safety Report 14132836 (Version 1)
Quarter: 2017Q4

REPORT INFORMATION
  Report Type: Spontaneous
  Country: US (occurrence: US)
  Receive Date: 20171026
  Receipt Date: 20171026
  Transmission Date: 20180321
  Serious: Yes (Other)
  Sender: FDA-Public Use
  Company Number: US-TEVA-819647ACC

PATIENT

DRUGS (1)
  1. COPAXONE [Suspect]
     Active Substance: GLATIRAMER ACETATE
     Indication: MULTIPLE SCLEROSIS
     Dosage: FORM STRENGTH WAS UNKNOWN

REACTIONS (4)
  - Dyspnoea [Unknown]
  - Injection site pain [Unknown]
  - Anaphylactic reaction [Unknown]
  - Chest discomfort [Unknown]
